FAERS Safety Report 9734382 (Version 1)
Quarter: 2013Q4

REPORT INFORMATION
  Report Type: Spontaneous
  Country: ZA (occurrence: ZA)
  Receive Date: 20131206
  Receipt Date: 20131206
  Transmission Date: 20140711
  Serious: Yes (Other)
  Sender: FDA-Public Use
  Company Number: ZA-AMGEN-ZAFSP2013085829

PATIENT
  Age: 49 Year
  Sex: Female

DRUGS (3)
  1. ENBREL [Suspect]
     Indication: RHEUMATOID ARTHRITIS
     Dosage: 50 MG, WEEKLY
     Route: 065
     Dates: start: 201206, end: 20130730
  2. METHOTREXATE SODIUM [Concomitant]
     Dosage: 4 TABLETS, UNKNOWN
     Route: 048
     Dates: start: 2012
  3. FOLIC ACID [Concomitant]
     Dosage: UNK, 1 DAILY
     Route: 048
     Dates: start: 2012

REACTIONS (4)
  - Malaise [Recovering/Resolving]
  - Drug ineffective [Recovering/Resolving]
  - Pneumonia [Recovering/Resolving]
  - Lower respiratory tract infection [Recovering/Resolving]
